FAERS Safety Report 13876877 (Version 2)
Quarter: 2017Q3

REPORT INFORMATION
  Report Type: Spontaneous
  Country: US (occurrence: US)
  Receive Date: 20170817
  Receipt Date: 20170927
  Transmission Date: 20171127
  Serious: No
  Sender: FDA-Public Use
  Company Number: US-ASTRAZENECA-2017SE82688

PATIENT
  Age: 836 Month
  Sex: Female
  Weight: 59 kg

DRUGS (4)
  1. VENTOLIN [Concomitant]
     Active Substance: ALBUTEROL SULFATE
     Route: 055
  2. RECLAST [Concomitant]
     Active Substance: ZOLEDRONIC ACID
     Dates: start: 20170725
  3. SYMBICORT [Suspect]
     Active Substance: BUDESONIDE\FORMOTEROL FUMARATE DIHYDRATE
     Indication: ASTHMA
     Dosage: 160/4.5 TWO PUFFS TWICE A DAY
     Route: 055
     Dates: start: 2008, end: 20170101
  4. SYMBICORT [Suspect]
     Active Substance: BUDESONIDE\FORMOTEROL FUMARATE DIHYDRATE
     Indication: ASTHMA
     Dosage: 160/4.5 2 PUFFS TWICE A DAY
     Route: 055
     Dates: start: 201703

REACTIONS (11)
  - Off label use of device [Not Recovered/Not Resolved]
  - Bronchitis [Recovered/Resolved]
  - Body height decreased [Not Recovered/Not Resolved]
  - Dyspnoea [Recovered/Resolved]
  - Breath sounds abnormal [Unknown]
  - Drug dose omission [Unknown]
  - Bone pain [Unknown]
  - Dizziness [Recovered/Resolved]
  - Device issue [Unknown]
  - Asthma [Recovered/Resolved]
  - Bone density abnormal [Unknown]

NARRATIVE: CASE EVENT DATE: 201703
